FAERS Safety Report 10762495 (Version 2)
Quarter: 2016Q4

REPORT INFORMATION
  Report Type: Spontaneous
  Country: US (occurrence: US)
  Receive Date: 20150204
  Receipt Date: 20161207
  Transmission Date: 20170206
  Serious: Yes (Other)
  Sender: FDA-Public Use
  Company Number: US-JNJFOC-20150112302

PATIENT
  Age: 15 Year
  Sex: Male

DRUGS (13)
  1. RISPERDAL [Suspect]
     Active Substance: RISPERIDONE
     Indication: DYSKINESIA
     Dosage: 0.5MG;1MG
     Route: 048
     Dates: start: 2005, end: 2010
  2. RISPERDAL [Suspect]
     Active Substance: RISPERIDONE
     Indication: ATTENTION DEFICIT/HYPERACTIVITY DISORDER
     Route: 048
  3. RISPERDAL [Suspect]
     Active Substance: RISPERIDONE
     Indication: DYSKINESIA
     Route: 048
  4. RISPERDAL [Suspect]
     Active Substance: RISPERIDONE
     Indication: BIPOLAR DISORDER
     Dosage: 0.5MG;1MG
     Route: 048
     Dates: start: 2005, end: 2010
  5. RISPERDAL [Suspect]
     Active Substance: RISPERIDONE
     Indication: ATTENTION DEFICIT/HYPERACTIVITY DISORDER
     Route: 048
     Dates: start: 2011, end: 2013
  6. RISPERDAL [Suspect]
     Active Substance: RISPERIDONE
     Indication: DYSKINESIA
     Route: 048
     Dates: start: 2011, end: 2013
  7. RISPERDAL [Suspect]
     Active Substance: RISPERIDONE
     Indication: TOURETTE^S DISORDER
     Dosage: 0.5MG;1MG
     Route: 048
     Dates: start: 2005, end: 2010
  8. RISPERDAL [Suspect]
     Active Substance: RISPERIDONE
     Indication: TOURETTE^S DISORDER
     Route: 048
  9. RISPERDAL [Suspect]
     Active Substance: RISPERIDONE
     Indication: ATTENTION DEFICIT/HYPERACTIVITY DISORDER
     Dosage: 0.5MG;1MG
     Route: 048
     Dates: start: 2005, end: 2010
  10. RISPERDAL [Suspect]
     Active Substance: RISPERIDONE
     Indication: BIPOLAR DISORDER
     Route: 048
  11. RISPERDAL [Suspect]
     Active Substance: RISPERIDONE
     Indication: BIPOLAR DISORDER
     Route: 048
     Dates: start: 2011, end: 2013
  12. RISPERDAL [Suspect]
     Active Substance: RISPERIDONE
     Indication: TOURETTE^S DISORDER
     Route: 048
     Dates: start: 2011, end: 2013
  13. RISPERIDONE. [Suspect]
     Active Substance: RISPERIDONE
     Indication: PRODUCT USED FOR UNKNOWN INDICATION
     Route: 048

REACTIONS (7)
  - Tourette^s disorder [Unknown]
  - Gynaecomastia [Unknown]
  - Hyperprolactinaemia [Unknown]
  - Product use issue [Unknown]
  - Galactorrhoea [Unknown]
  - Abnormal weight gain [Unknown]
  - Off label use [Unknown]

NARRATIVE: CASE EVENT DATE: 2005
